FAERS Safety Report 9140052 (Version 2)
Quarter: 2013Q1

REPORT INFORMATION
  Report Type: Report from Study
  Country: DE (occurrence: DE)
  Receive Date: 20130305
  Receipt Date: 20130308
  Transmission Date: 20140127
  Serious: Yes (Hospitalization)
  Sender: FDA-Public Use
  Company Number: DE-JNJFOC-20130300074

PATIENT
  Sex: Male
  Weight: 79 kg

DRUGS (3)
  1. REMICADE [Suspect]
     Indication: COLITIS ULCERATIVE
     Route: 042
     Dates: start: 20120716
  2. PANTOPRAZOLE [Concomitant]
     Indication: GASTROINTESTINAL DISORDER THERAPY
     Route: 048
  3. AZATHIOPRINE [Concomitant]
     Indication: COLITIS ULCERATIVE
     Route: 048

REACTIONS (1)
  - Cytomegalovirus colitis [Recovered/Resolved]
